FAERS Safety Report 7164686-3 (Version None)
Quarter: 2010Q4

REPORT INFORMATION
  Report Type: 
  Country: None (occurrence: None)
  Receive Date: 20101215
  Receipt Date: 20101206
  Transmission Date: 20110411
  Serious: Yes (Hospitalization, Other)
  Sender: FDA-Public Use
  Company Number: FR-PFIZER INC-2010165933

PATIENT
  Age: 81 Year
  Sex: Female

DRUGS (13)
  1. ZOLOFT [Suspect]
     Indication: DEPRESSION
     Dosage: 50 MG, 1X/DAY
     Route: 048
     Dates: start: 20090515
  2. KARDEGIC [Suspect]
     Indication: PROPHYLAXIS
     Dosage: 75 MG, 1X/DAY
     Route: 048
     Dates: start: 20100201, end: 20101010
  3. VASTEN [Suspect]
     Indication: HYPERCHOLESTEROLAEMIA
     Dosage: 20 MG, 1X/DAY
     Route: 048
     Dates: end: 20101010
  4. CARDENSIEL [Suspect]
     Indication: CARDIAC DISORDER
     Dosage: 1.25 MG, 1X/DAY
     Route: 048
  5. DICLOFENAC SODIUM AND MISOPROSTOL [Concomitant]
  6. KENZEN [Concomitant]
     Dosage: 8 MG, 1X/DAY
  7. LASIX [Concomitant]
     Dosage: 20 MG, 1X/DAY
  8. LEVOTHYROX [Concomitant]
     Dosage: 125 UG, 1X/DAY
  9. OMEPRAZOLE [Concomitant]
     Dosage: 20 MG, 1X/DAY
  10. TARDYFERON [Concomitant]
     Dosage: 1 DF, 1X/DAY
  11. SERETIDE [Concomitant]
     Dosage: 1000 UG, 2X/DAY
  12. STRESAM [Concomitant]
     Dosage: 100 MG, 2X/DAY
     Dates: start: 20100901
  13. OXYGEN [Concomitant]
     Dosage: UNK
     Dates: start: 20100701

REACTIONS (4)
  - BUNDLE BRANCH BLOCK [None]
  - ELECTROCARDIOGRAM REPOLARISATION ABNORMALITY [None]
  - INTERSTITIAL LUNG DISEASE [None]
  - RESPIRATORY FAILURE [None]
